FAERS Safety Report 9059382 (Version 14)
Quarter: 2016Q2

REPORT INFORMATION
  Report Type: Spontaneous
  Country: US (occurrence: US)
  Receive Date: 20130211
  Receipt Date: 20160624
  Transmission Date: 20160815
  Serious: Yes (Death, Hospitalization, Other)
  Sender: FDA-Public Use
  Company Number: US-GLAXOSMITHKLINE-A0917426A

PATIENT
  Age: 60 Year
  Sex: Female
  Weight: 56.2 kg

DRUGS (14)
  1. FLOLAN [Suspect]
     Active Substance: EPOPROSTENOL SODIUM
     Indication: PULMONARY ARTERIAL HYPERTENSION
     Dosage: UNK
     Dates: start: 20100609
  2. FLOLAN [Suspect]
     Active Substance: EPOPROSTENOL SODIUM
     Dosage: UNK
     Dates: start: 20100609
  3. FLOLAN [Suspect]
     Active Substance: EPOPROSTENOL SODIUM
     Dosage: 43 NG/KG/MIN
     Dates: start: 20100628
  4. FLOLAN [Suspect]
     Active Substance: EPOPROSTENOL SODIUM
     Dosage: UNK, CO
     Route: 042
     Dates: start: 20100626
  5. FLOLAN [Suspect]
     Active Substance: EPOPROSTENOL SODIUM
     Indication: PULMONARY ARTERIAL HYPERTENSION
     Dosage: 20 NG/KG/ML, 30,000 NG/ML, 60 ML/DAY PUMP RATE45 NG/KG/MIN, 45,000 NG/ML, 1.5 MG VIAL STRENGTH7[...]
     Route: 042
     Dates: start: 20100609
  6. FLOLAN [Suspect]
     Active Substance: EPOPROSTENOL SODIUM
     Dosage: UNK
     Dates: start: 20100609
  7. FLOLAN [Suspect]
     Active Substance: EPOPROSTENOL SODIUM
     Dosage: UNK
     Dates: start: 20100609
  8. FLOLAN [Suspect]
     Active Substance: EPOPROSTENOL SODIUM
     Dosage: 41 UNK, CO
     Route: 042
     Dates: start: 20100628
  9. FLOLAN [Suspect]
     Active Substance: EPOPROSTENOL SODIUM
     Dosage: 39 DF, CO
     Route: 042
     Dates: start: 20100626
  10. TRACLEER [Suspect]
     Active Substance: BOSENTAN
     Route: 048
     Dates: end: 2011
  11. WARFARIN [Concomitant]
     Active Substance: WARFARIN
  12. FLOLAN [Suspect]
     Active Substance: EPOPROSTENOL SODIUM
     Dosage: UNK
     Dates: start: 20100609
  13. FLOLAN [Suspect]
     Active Substance: EPOPROSTENOL SODIUM
     Dosage: UNK
     Dates: start: 20100609
  14. FLOLAN [Suspect]
     Active Substance: EPOPROSTENOL SODIUM
     Dosage: 39 NG/KG/MIN CONTINUOUS; CONCENTRATION: 45,000 NG/ML; PUMP RATE: 61 ML/DAY; VIAL STRENGTH: 1.5 MG
     Route: 042
     Dates: start: 20150211

REACTIONS (17)
  - Catheter site erythema [Unknown]
  - Central venous catheter removal [Unknown]
  - Death [Fatal]
  - Infusion site pruritus [Unknown]
  - Injury [Unknown]
  - Loss of consciousness [Unknown]
  - Central venous catheterisation [Unknown]
  - Epistaxis [Unknown]
  - Asthenia [Unknown]
  - Liver disorder [Unknown]
  - Hospitalisation [Not Recovered/Not Resolved]
  - Dyspnoea [Unknown]
  - Syncope [Unknown]
  - Pulmonary oedema [Unknown]
  - Fall [Unknown]
  - Dizziness [Unknown]
  - Peripheral swelling [Unknown]

NARRATIVE: CASE EVENT DATE: 20110302
